FAERS Safety Report 5650373-7 (Version None)
Quarter: 2008Q1

REPORT INFORMATION
  Report Type: 
  Country: None (occurrence: None)
  Receive Date: 20080304
  Receipt Date: 20080304
  Transmission Date: 20080703
  Serious: Yes (Other)
  Sender: FDA-Public Use
  Company Number: None

PATIENT
  Age: 88 Year
  Sex: Female
  Weight: 55.7924 kg

DRUGS (3)
  1. TORISEL [Suspect]
     Indication: RENAL NEOPLASM
     Dosage: 25MG WEEKLY IV DRIP TBD
     Route: 041
     Dates: start: 20080214, end: 20080228
  2. DIPHENHYDRAMINE HCL [Concomitant]
  3. NORVASC [Concomitant]

REACTIONS (1)
  - BLOOD PRESSURE SYSTOLIC INCREASED [None]
